FAERS Safety Report 10930621 (Version 2)
Quarter: 2015Q2

REPORT INFORMATION
  Report Type: Spontaneous
  Country: US (occurrence: US)
  Receive Date: 20150319
  Receipt Date: 20150514
  Transmission Date: 20150821
  Serious: Yes (Death, Hospitalization)
  Sender: FDA-Public Use
  Company Number: US-JNJFOC-20150305057

PATIENT
  Age: 31 Year
  Sex: Male
  Weight: 31.75 kg

DRUGS (3)
  1. LEVAQUIN [Suspect]
     Active Substance: LEVOFLOXACIN
     Indication: BRONCHITIS
     Route: 048
     Dates: start: 20150105, end: 20150111
  2. VITAMIN C [Concomitant]
     Active Substance: ASCORBIC ACID
     Route: 065
  3. DEPAKOTE SPRINKLES [Concomitant]
     Active Substance: DIVALPROEX SODIUM
     Indication: SEIZURE
     Dosage: 3 1/2 IN AM AND 3 AT NIGHT
     Route: 048
     Dates: start: 1988

REACTIONS (9)
  - Palpitations [Not Recovered/Not Resolved]
  - Wrong technique in drug usage process [Unknown]
  - Hyperphagia [Not Recovered/Not Resolved]
  - Pneumonia aspiration [Fatal]
  - Seizure [Not Recovered/Not Resolved]
  - Dyskinesia [Not Recovered/Not Resolved]
  - Pyrexia [Not Recovered/Not Resolved]
  - Abdominal discomfort [Not Recovered/Not Resolved]
  - Sepsis [Not Recovered/Not Resolved]

NARRATIVE: CASE EVENT DATE: 201501
